FAERS Safety Report 24744910 (Version 1)
Quarter: 2024Q4

REPORT INFORMATION
  Report Type: Spontaneous
  Country: US (occurrence: US)
  Receive Date: 20241217
  Receipt Date: 20241217
  Transmission Date: 20250114
  Serious: No
  Sender: TRAVERE THERAPEUTICS
  Company Number: US-TRAVERE-2024TVT01229

PATIENT
  Age: 47 Year
  Sex: Female

DRUGS (1)
  1. FILSPARI [Suspect]
     Active Substance: SPARSENTAN
     Indication: IgA nephropathy
     Dosage: 1 TABLET, 1 TIME A DAY FOR 1-14 DAYS, THEN 2 TABLETS 1 TIME A DAY FOR 15-30 DAYS
     Route: 048
     Dates: start: 202411

REACTIONS (3)
  - Chromaturia [Unknown]
  - Abdominal discomfort [Unknown]
  - Malaise [Unknown]

NARRATIVE: CASE EVENT DATE: 20241101
